FAERS Safety Report 17226582 (Version 2)
Quarter: 2020Q1

REPORT INFORMATION
  Report Type: Report from Study
  Country: US (occurrence: US)
  Receive Date: 20200102
  Receipt Date: 20200110
  Transmission Date: 20200409
  Serious: No
  Sender: FDA-Public Use
  Company Number: US-JAZZ-2019-US-018235

PATIENT
  Sex: Female

DRUGS (2)
  1. XYREM [Suspect]
     Active Substance: SODIUM OXYBATE
     Indication: NARCOLEPSY
     Dosage: 2.25 G, BID
     Route: 048
     Dates: start: 201912
  2. XYREM [Suspect]
     Active Substance: SODIUM OXYBATE
     Indication: CATAPLEXY

REACTIONS (2)
  - No adverse event [Unknown]
  - No adverse event [Not Recovered/Not Resolved]

NARRATIVE: CASE EVENT DATE: 2019
